FAERS Safety Report 5993564-8 (Version None)
Quarter: 2008Q4

REPORT INFORMATION
  Report Type: 
  Country: None (occurrence: None)
  Receive Date: 20081212
  Receipt Date: 20081203
  Transmission Date: 20090506
  Serious: Yes (Hospitalization)
  Sender: FDA-Public Use
  Company Number: PHBS2008DE06598

PATIENT
  Age: 35 Year
  Sex: Female

DRUGS (7)
  1. TRILEPTAL [Suspect]
     Indication: CONVULSION
     Dosage: 450 MG, BID
  2. PHENYTOIN [Interacting]
     Indication: CONVULSION
     Dosage: 750 MG, UNK
  3. PHENYTOIN [Interacting]
     Dosage: 62.5 MG/H
  4. PHENYTOIN [Interacting]
     Dosage: 80 MG/H
  5. KEPPRA [Concomitant]
     Dosage: 1500 MG, BID
  6. DIAZEPAM [Concomitant]
     Dosage: 40 MG, UNK
  7. THIOPENTAL SODIUM [Concomitant]
     Dosage: 100 MG, UNK

REACTIONS (19)
  - AGITATION [None]
  - ATAXIA [None]
  - BLOOD PRESSURE SYSTOLIC INCREASED [None]
  - CONFUSIONAL STATE [None]
  - CONVULSION [None]
  - DIZZINESS [None]
  - DRUG INTERACTION [None]
  - DRUG LEVEL INCREASED [None]
  - DYSARTHRIA [None]
  - ENDOTRACHEAL INTUBATION [None]
  - EYE MOVEMENT DISORDER [None]
  - HAEMODIALYSIS [None]
  - HAEMOPERFUSION [None]
  - HEPATIC ENZYME ABNORMAL [None]
  - NYSTAGMUS [None]
  - OVERDOSE [None]
  - SINUS TACHYCARDIA [None]
  - SOMNOLENCE [None]
  - STATUS EPILEPTICUS [None]
